FAERS Safety Report 7201261-6 (Version None)
Quarter: 2010Q4

REPORT INFORMATION
  Report Type: 
  Country: None (occurrence: None)
  Receive Date: 20101227
  Receipt Date: 20101227
  Transmission Date: 20110411
  Serious: Yes (Life-Threatening, Hospitalization)
  Sender: FDA-Public Use
  Company Number: None

PATIENT
  Age: 59 Year
  Sex: Male
  Weight: 73.5 kg

DRUGS (2)
  1. LISINOPRIL [Suspect]
     Dosage: 20MG DAILY PO
     Route: 048
  2. AZITHROMYCIN [Suspect]
     Dates: start: 20101222, end: 20101223

REACTIONS (1)
  - ANGIOEDEMA [None]
